FAERS Safety Report 10900587 (Version 4)
Quarter: 2015Q2

REPORT INFORMATION
  Report Type: Spontaneous
  Country: CA (occurrence: CA)
  Receive Date: 20150310
  Receipt Date: 20150602
  Transmission Date: 20150821
  Serious: Yes (Hospitalization)
  Sender: FDA-Public Use
  Company Number: CA-ROCHE-1548179

PATIENT
  Age: 53 Year
  Sex: Male

DRUGS (3)
  1. XOLAIR [Suspect]
     Active Substance: OMALIZUMAB
     Route: 058
     Dates: start: 20140522
  2. XOLAIR [Suspect]
     Active Substance: OMALIZUMAB
     Indication: ASTHMA
     Route: 058
     Dates: start: 20131010
  3. XOLAIR [Suspect]
     Active Substance: OMALIZUMAB
     Route: 058
     Dates: start: 20150521

REACTIONS (15)
  - Ligament sprain [Unknown]
  - Nasopharyngitis [Unknown]
  - Pericarditis [Unknown]
  - Respiratory disorder [Recovering/Resolving]
  - Psoriasis [Unknown]
  - Weight increased [Unknown]
  - Snoring [Unknown]
  - Nasal congestion [Unknown]
  - Blood pressure abnormal [Unknown]
  - Dyspnoea [Recovering/Resolving]
  - Fall [Unknown]
  - Rales [Recovering/Resolving]
  - Headache [Unknown]
  - Dizziness [Unknown]
  - Cough [Recovering/Resolving]

NARRATIVE: CASE EVENT DATE: 201311
